FAERS Safety Report 6269078-7 (Version None)
Quarter: 2009Q3

REPORT INFORMATION
  Report Type: 
  Country: None (occurrence: None)
  Receive Date: 20090715
  Receipt Date: 20090707
  Transmission Date: 20100115
  Serious: Yes (Hospitalization)
  Sender: FDA-Public Use
  Company Number: GB-PFIZER INC-2009189958

PATIENT
  Age: 59 Year

DRUGS (12)
  1. *ERLOTINIB [Suspect]
     Indication: NON-SMALL CELL LUNG CANCER
     Dosage: 150 MG, 1X/DAY
     Route: 048
     Dates: start: 20081208, end: 20090216
  2. BLINDED *NO SUBJECT DRUG [Suspect]
     Indication: NON-SMALL CELL LUNG CANCER
     Dosage: 37.5 MG, 1X/DAY
     Route: 048
     Dates: start: 20081208, end: 20090216
  3. BLINDED *PLACEBO [Suspect]
     Indication: NON-SMALL CELL LUNG CANCER
     Dosage: 37.5 MG, 1X/DAY
     Route: 048
     Dates: start: 20081208, end: 20090216
  4. BLINDED SUNITINIB MALATE [Suspect]
     Indication: NON-SMALL CELL LUNG CANCER
     Dosage: 37.5 MG, 1X/DAY
     Route: 048
     Dates: start: 20081208, end: 20090216
  5. MST [Concomitant]
     Indication: PAIN
     Dosage: 60 MG, 2X/DAY
     Route: 048
     Dates: start: 20081218, end: 20090214
  6. CITALOPRAM [Concomitant]
     Indication: DEPRESSION
     Dosage: 10 MG, 1X/DAY
     Route: 048
     Dates: start: 20081030
  7. ORAMORPH SR [Concomitant]
     Indication: PAIN
     Dosage: 10 MG, AS NEEDED
     Route: 048
     Dates: start: 20081030
  8. DICLOFENAC SODIUM [Concomitant]
     Indication: PAIN
     Dosage: 50 MG, AS NEEDED
     Route: 048
     Dates: start: 20090201
  9. QVAR 40 [Concomitant]
     Indication: DYSPNOEA
     Dosage: UNK
     Dates: start: 20080101
  10. SALBUTAMOL [Concomitant]
     Indication: DYSPNOEA
     Dosage: UNK
     Dates: start: 20080101
  11. RANITIDINE [Concomitant]
     Indication: NAUSEA
     Dosage: 150 MG, 2X/DAY
     Route: 048
     Dates: start: 20090202
  12. METOCLOPRAMIDE [Concomitant]
     Indication: NAUSEA
     Dosage: 10 MG, 3X/DAY
     Route: 048
     Dates: start: 20090202

REACTIONS (1)
  - PERICARDIAL EFFUSION [None]
